FAERS Safety Report 4510730-9 (Version None)
Quarter: 2004Q4

REPORT INFORMATION
  Report Type: 
  Country: None (occurrence: None)
  Receive Date: 20041122
  Receipt Date: 20041108
  Transmission Date: 20050328
  Serious: Yes (Life-Threatening, Hospitalization, Other)
  Sender: FDA-Public Use
  Company Number: 2004063402

PATIENT
  Age: 69 Year
  Sex: Male

DRUGS (6)
  1. LIPITOR [Suspect]
     Indication: ILL-DEFINED DISORDER
     Dosage: 10 MG (1 IN 1 D), ORAL
     Route: 048
     Dates: end: 20040723
  2. TOSUFLOXACIN TOSILATE        (TOSUFLOXACIN TOSILATE) [Concomitant]
  3. SPIRONOLACTONE [Concomitant]
  4. FUROSEMIDE [Concomitant]
  5. TICLOPIDINE HCL [Concomitant]
  6. AMLODIPINE BESYLATE [Concomitant]

REACTIONS (5)
  - ASTHENIA [None]
  - NASOPHARYNGITIS [None]
  - PNEUMONIA ASPIRATION [None]
  - RENAL FAILURE [None]
  - RHABDOMYOLYSIS [None]
